FAERS Safety Report 16057968 (Version 2)
Quarter: 2019Q1

REPORT INFORMATION
  Report Type: Report from Study
  Country: US (occurrence: US)
  Receive Date: 20190311
  Receipt Date: 20190319
  Transmission Date: 20190418
  Serious: Yes (Other)
  Sender: FDA-Public Use
  Company Number: US-ROCHE-2278879

PATIENT

DRUGS (4)
  1. RITUXIMAB. [Suspect]
     Active Substance: RITUXIMAB
     Indication: B-CELL LYMPHOMA
     Dosage: ON DAY 1 OF EACH CYCLE (6 CYCLES; SCHEDULE A)
     Route: 042
  2. LENALIDOMIDE [Suspect]
     Active Substance: LENALIDOMIDE
     Dosage: ON DAYS 1-21 OF EACH 28-DAY CYCLE FOR CYCLES 1-6 THEN LENALIDOMIDE 10 MG/DAY ON DAYS 2- 22 FOR CYCLE
     Route: 065
  3. LENALIDOMIDE [Suspect]
     Active Substance: LENALIDOMIDE
     Indication: B-CELL LYMPHOMA
     Dosage: DAYS 1-21 OF EACH 28-DAY CYCLE (SCHEDULE A)
     Route: 065
  4. RITUXIMAB. [Suspect]
     Active Substance: RITUXIMAB
     Dosage: ONE WEEKLY ON CYCLE 1 AND DAY 1 OF EVERY SUBSEQUENT CYCLE (12 CYCLES; SCHEDULE B).
     Route: 042

REACTIONS (8)
  - Arterial thrombosis [Unknown]
  - Neoplasm malignant [Unknown]
  - Respiratory failure [Unknown]
  - Neutropenia [Unknown]
  - Thrombocytopenia [Unknown]
  - Skin cancer [Unknown]
  - Malignant melanoma in situ [Unknown]
  - Haematological malignancy [Unknown]
